FAERS Safety Report 9502230 (Version 1)
Quarter: 2013Q3

REPORT INFORMATION
  Report Type: Report from Study
  Country: ID (occurrence: ID)
  Receive Date: 20130906
  Receipt Date: 20130906
  Transmission Date: 20140515
  Serious: Yes (Death, Other)
  Sender: FDA-Public Use
  Company Number: ID-ROCHE-1270965

PATIENT
  Age: 55 Year
  Sex: Female

DRUGS (4)
  1. AVASTIN [Suspect]
     Indication: COLORECTAL CANCER METASTATIC
     Route: 042
     Dates: start: 20130629, end: 20130816
  2. OXALIPLATIN [Concomitant]
  3. FOLINIC ACID [Concomitant]
  4. FLUOROURACIL [Concomitant]

REACTIONS (2)
  - Hepatic infection [Fatal]
  - Blood bilirubin increased [Fatal]
